FAERS Safety Report 8573451-1 (Version None)
Quarter: 2012Q2

REPORT INFORMATION
  Report Type: 
  Country: None (occurrence: None)
  Receive Date: 20120423
  Receipt Date: 20101027
  Transmission Date: 20120825
  Serious: Yes (Other)
  Sender: FDA-Public Use
  Company Number: PHHY2010US70016

PATIENT
  Age: 81 Year
  Sex: Female
  Weight: 63 kg

DRUGS (9)
  1. FOSAMAX [Concomitant]
  2. ACETAMINOPHEN [Concomitant]
  3. EXJADE [Suspect]
     Indication: MYELODYSPLASTIC SYNDROME
     Dosage: 125 MG, DAILY, ORAL ; 125 MG, DAILY, ORAL
     Route: 048
     Dates: start: 20101004, end: 20101004
  4. EXJADE [Suspect]
     Indication: MYELODYSPLASTIC SYNDROME
     Dosage: 125 MG, DAILY, ORAL ; 125 MG, DAILY, ORAL
     Route: 048
     Dates: start: 20101012, end: 20101016
  5. CEFDINIR [Concomitant]
  6. CITRACAL (CALCIUM CITRATE) [Concomitant]
  7. NORVASC [Concomitant]
  8. METOPROLOL TARTRATE [Concomitant]
  9. OMEPRAZOLE [Concomitant]

REACTIONS (2)
  - SLEEP DISORDER [None]
  - DEAFNESS [None]
